FAERS Safety Report 8512694-X (Version None)
Quarter: 2012Q3

REPORT INFORMATION
  Report Type: 
  Country: None (occurrence: None)
  Receive Date: 20120716
  Receipt Date: 20120709
  Transmission Date: 20120928
  Serious: Yes (Other)
  Sender: FDA-Public Use
  Company Number: FR-PFIZER INC-2012164532

PATIENT
  Age: 62 Year
  Sex: Female

DRUGS (1)
  1. REVATIO [Suspect]
     Indication: SCLERODERMA
     Dosage: 20 MG, 2X/DAY
     Dates: start: 20120401, end: 20120709

REACTIONS (4)
  - CONJUNCTIVAL HAEMORRHAGE [None]
  - VERTIGO [None]
  - PRURITUS [None]
  - HEADACHE [None]
